FAERS Safety Report 5123921-3 (Version None)
Quarter: 2006Q3

REPORT INFORMATION
  Report Type: 
  Country: None (occurrence: None)
  Receive Date: 20060811
  Receipt Date: 20060524
  Transmission Date: 20061208
  Serious: No
  Sender: FDA-Public Use
  Company Number: S06-USA-02075-01

PATIENT
  Age: 84 Year
  Sex: Male

DRUGS (6)
  1. NAMENDA [Suspect]
     Indication: MENTAL STATUS CHANGES
     Dosage: 5 MG QD PO
     Route: 048
     Dates: start: 20060101, end: 20060101
  2. NAMENDA [Suspect]
     Indication: MENTAL STATUS CHANGES
     Dosage: 5 MG BID PO
     Route: 048
     Dates: start: 20060101, end: 20060101
  3. NAMENDA [Suspect]
     Indication: MENTAL STATUS CHANGES
     Dosage: 15 MG QD PO
     Route: 048
     Dates: start: 20060101
  4. HYZAAR [Concomitant]
  5. LANOXIN [Concomitant]
  6. VITAMINS [Concomitant]

REACTIONS (1)
  - CONFUSIONAL STATE [None]
